FAERS Safety Report 14499148 (Version 1)
Quarter: 2018Q1

REPORT INFORMATION
  Report Type: Spontaneous
  Country: US (occurrence: US)
  Receive Date: 20180207
  Receipt Date: 20180207
  Transmission Date: 20180509
  Serious: No
  Sender: FDA-Public Use
  Company Number: US-JAZZ-2017-US-001515

PATIENT
  Age: 53 Year
  Sex: Female

DRUGS (6)
  1. PRIALT [Suspect]
     Active Substance: ZICONOTIDE ACETATE
     Dosage: .052?G, QH
     Route: 037
     Dates: start: 20140715
  2. BUPIVACAINE. [Suspect]
     Active Substance: BUPIVACAINE
     Indication: PRODUCT USED FOR UNKNOWN INDICATION
     Dosage: 0.18 MG, QH
     Route: 037
     Dates: start: 20140701
  3. BUPIVACAINE. [Suspect]
     Active Substance: BUPIVACAINE
     Dosage: 0.22 MG, QH
     Route: 037
     Dates: start: 20140715
  4. PRIALT [Suspect]
     Active Substance: ZICONOTIDE ACETATE
     Indication: PRODUCT USED FOR UNKNOWN INDICATION
     Dosage: 0.043 ?G, QH
     Route: 037
     Dates: start: 20140701
  5. FENTANYL. [Suspect]
     Active Substance: FENTANYL
     Indication: PRODUCT USED FOR UNKNOWN INDICATION
     Dosage: 43 ?G, QH
     Route: 037
     Dates: start: 20140701
  6. FENTANYL. [Suspect]
     Active Substance: FENTANYL
     Dosage: 52.01 ?G, QH
     Route: 037
     Dates: start: 20140715

REACTIONS (3)
  - Aphasia [Recovered/Resolved]
  - Anxiety [Recovered/Resolved]
  - Cognitive disorder [Recovered/Resolved]

NARRATIVE: CASE EVENT DATE: 20140723
